FAERS Safety Report 9343813 (Version 3)
Quarter: 2013Q3

REPORT INFORMATION
  Report Type: Spontaneous
  Country: BR (occurrence: BR)
  Receive Date: 20130612
  Receipt Date: 20130712
  Transmission Date: 20140515
  Serious: Yes (Hospitalization)
  Sender: FDA-Public Use
  Company Number: BR-JNJFOC-20130604247

PATIENT
  Age: 2 Month
  Sex: Female
  Weight: 4 kg

DRUGS (1)
  1. TYLENOL GOTAS [Suspect]
     Indication: VACCINATION COMPLICATION
     Route: 048
     Dates: start: 20121119, end: 20121119

REACTIONS (3)
  - Accidental overdose [Recovered/Resolved]
  - Product dropper issue [Unknown]
  - Blood alkaline phosphatase increased [Recovered/Resolved]
